FAERS Safety Report 8817690 (Version 1)
Quarter: 2012Q4

REPORT INFORMATION
  Report Type: 
  Country: BR (occurrence: BR)
  Receive Date: 20121001
  Receipt Date: 20121001
  Transmission Date: 20130627
  Serious: Yes (Death, Hospitalization, Other)
  Sender: FDA-Public Use
  Company Number: PHHY2012BR084689

PATIENT
  Age: 77 Year
  Sex: Female

DRUGS (1)
  1. DIOVAN HCT [Suspect]
     Indication: HYPERTENSION
     Dosage: 1 tablet (160/12.5 mg) daily
     Route: 048

REACTIONS (8)
  - Hypovolaemic shock [Fatal]
  - Sudden cardiac death [Fatal]
  - Atrial fibrillation [Unknown]
  - Hypertension [Unknown]
  - Cerebrovascular accident [Recovering/Resolving]
  - Movement disorder [Recovering/Resolving]
  - Fall [Unknown]
  - Gait disturbance [Unknown]
